FAERS Safety Report 11432483 (Version 1)
Quarter: 2015Q3

REPORT INFORMATION
  Report Type: Spontaneous
  Country: NL (occurrence: NL)
  Receive Date: 20150828
  Receipt Date: 20150828
  Transmission Date: 20151125
  Serious: Yes (Other)
  Sender: FDA-Public Use
  Company Number: NL-ASTRAZENECA-2015SE81576

PATIENT

DRUGS (2)
  1. NEXIUM [Suspect]
     Active Substance: ESOMEPRAZOLE MAGNESIUM
     Indication: ABDOMINAL DISCOMFORT
     Route: 048
  2. DOMPIRIDON [Concomitant]

REACTIONS (12)
  - Nausea [Unknown]
  - Confusional state [Unknown]
  - Restlessness [Unknown]
  - Headache [Unknown]
  - Abdominal pain upper [Unknown]
  - Dizziness [Unknown]
  - Suicidal ideation [Unknown]
  - Muscular weakness [Unknown]
  - Fatigue [Unknown]
  - Depression [Unknown]
  - Lethargy [Unknown]
  - Alopecia [Unknown]
